FAERS Safety Report 21151311 (Version 4)
Quarter: 2023Q4

REPORT INFORMATION
  Report Type: Report from Study
  Country: BR (occurrence: BR)
  Receive Date: 20220730
  Receipt Date: 20231017
  Transmission Date: 20240109
  Serious: Yes (Hospitalization)
  Sender: FDA-Public Use
  Company Number: BR-ABBVIE-22K-020-4486415-00

PATIENT
  Sex: Male
  Weight: 109 kg

DRUGS (2)
  1. SKYRIZI [Suspect]
     Active Substance: RISANKIZUMAB-RZAA
     Indication: Psoriasis
     Dosage: FORM STRENGTH: 75 MG
     Route: 058
     Dates: start: 20210717
  2. TENOXICAM [Suspect]
     Active Substance: TENOXICAM
     Indication: Antiinflammatory therapy
     Route: 065

REACTIONS (7)
  - COVID-19 [Recovered/Resolved]
  - Dermatitis allergic [Recovered/Resolved]
  - Anxiety [Unknown]
  - Nervousness [Unknown]
  - Mental disorder [Unknown]
  - Pain [Recovered/Resolved]
  - Psoriasis [Recovering/Resolving]

NARRATIVE: CASE EVENT DATE: 20210101
